FAERS Safety Report 5139695-6 (Version None)
Quarter: 2006Q4

REPORT INFORMATION
  Report Type: 
  Country: None (occurrence: None)
  Receive Date: 20061024
  Receipt Date: 20061012
  Transmission Date: 20070319
  Serious: Yes (Life-Threatening, Hospitalization)
  Sender: FDA-Public Use
  Company Number: T200601154

PATIENT
  Age: 38 Year
  Sex: Male
  Weight: 77 kg

DRUGS (10)
  1. OPTIRAY 160 [Suspect]
     Indication: COMPUTERISED TOMOGRAM ABDOMEN
     Dosage: 100 ML, SINGLE, INTRAVENOUS
     Route: 042
     Dates: start: 20061010, end: 20061010
  2. METHYCOBAL (MECOBALAMIN) [Concomitant]
  3. LOPERAMIDE HCL [Concomitant]
  4. ADSORBIN (ALUMINIUM SILICATE) [Concomitant]
  5. URINORM (BENZBROMARONE) [Concomitant]
  6. DEPAS (ETIZOLAM) [Concomitant]
  7. 5-FU /00098801/ (FLUOROURACIL) [Concomitant]
  8. ISOVORIN /01267301/ (CALCIUM LEVOFOLINATE) [Concomitant]
  9. OXALIPLATIN [Concomitant]
  10. KYTRIL /01178102/(GRANISETRON HYDROCHLORIDE) [Concomitant]

REACTIONS (2)
  - NO REACTION ON PREVIOUS EXPOSURE TO DRUG [None]
  - SHOCK [None]
